FAERS Safety Report 22243897 (Version 2)
Quarter: 2023Q2

REPORT INFORMATION
  Report Type: Report from Study
  Country: US (occurrence: US)
  Receive Date: 20230424
  Receipt Date: 20230623
  Transmission Date: 20230721
  Serious: Yes (Hospitalization)
  Sender: FDA-Public Use
  Company Number: US-ABBVIE-4737082

PATIENT
  Sex: Female

DRUGS (2)
  1. RINVOQ [Suspect]
     Active Substance: UPADACITINIB
     Indication: Psoriatic arthropathy
     Dosage: FORM STRENGTH: 15 MILLIGRAM?END DATE: 2023
     Route: 048
     Dates: start: 202301
  2. RINVOQ [Suspect]
     Active Substance: UPADACITINIB
     Indication: Psoriatic arthropathy
     Dosage: START DATE: 2023?FORM STRENGTH: 15 MG
     Route: 048

REACTIONS (5)
  - Cholelithiasis [Unknown]
  - Muscular weakness [Unknown]
  - Sacral pain [Not Recovered/Not Resolved]
  - Intestinal obstruction [Unknown]
  - Pain [Unknown]

NARRATIVE: CASE EVENT DATE: 20230101
